FAERS Safety Report 5730503-9 (Version None)
Quarter: 2008Q2

REPORT INFORMATION
  Report Type: 
  Country: None (occurrence: None)
  Receive Date: 20080507
  Receipt Date: 20080428
  Transmission Date: 20081010
  Serious: Yes (Hospitalization, Other)
  Sender: FDA-Public Use
  Company Number: US-ABBOTT-08P-163-0449385-00

PATIENT
  Sex: Female
  Weight: 72.64 kg

DRUGS (9)
  1. SYNTHROID [Suspect]
     Indication: HYPOTHYROIDISM
     Route: 048
     Dates: start: 19880101
  2. LIOTHYRONINE SODIUM [Suspect]
     Indication: DRUG USE FOR UNKNOWN INDICATION
     Route: 048
     Dates: end: 20060101
  3. LIOTHYRONINE SODIUM [Suspect]
     Route: 048
     Dates: start: 20060101
  4. CETIRIZINE HCL [Concomitant]
     Indication: SEASONAL ALLERGY
     Route: 048
     Dates: start: 20050101
  5. CYCLOBENZAPRINE HCL [Concomitant]
     Indication: NECK INJURY
     Route: 048
     Dates: start: 20071001
  6. SUCRALFATE [Concomitant]
     Indication: ULCER
     Route: 048
     Dates: start: 20070401
  7. LANSOPRAZOLE [Concomitant]
     Indication: ULCER
     Route: 048
     Dates: start: 20070401
  8. MULTI-VITAMIN [Concomitant]
     Indication: VITAMIN SUPPLEMENTATION
     Route: 048
  9. LORAZEPAM [Concomitant]
     Indication: SLEEP DISORDER THERAPY
     Route: 048
     Dates: start: 20060101

REACTIONS (4)
  - ABDOMINAL PAIN [None]
  - HYPERAESTHESIA [None]
  - OBESITY [None]
  - PSYCHOMOTOR HYPERACTIVITY [None]
